FAERS Safety Report 8237449-5 (Version None)
Quarter: 2012Q1

REPORT INFORMATION
  Report Type: 
  Country: None (occurrence: None)
  Receive Date: 20120327
  Receipt Date: 20120322
  Transmission Date: 20120608
  Serious: Yes (Hospitalization, Other)
  Sender: FDA-Public Use
  Company Number: US-B.I. PHARMACEUTICALS,INC./RIDGEFIELD-2012-BP-05548BP

PATIENT

DRUGS (1)
  1. PRADAXA [Suspect]

REACTIONS (2)
  - JOINT INJURY [None]
  - DEEP VEIN THROMBOSIS [None]
